FAERS Safety Report 6240660-6 (Version None)
Quarter: 2009Q2

REPORT INFORMATION
  Report Type: 
  Country: None (occurrence: None)
  Receive Date: 20090623
  Receipt Date: 20081209
  Transmission Date: 20091009
  Serious: No
  Sender: FDA-Public Use
  Company Number: US-ASTRAZENECA-2008UW27318

PATIENT
  Sex: Female

DRUGS (1)
  1. PULMICORT RESPULES [Suspect]
     Route: 055
     Dates: start: 20080819, end: 20081202

REACTIONS (4)
  - ASTHMA [None]
  - BRONCHITIS [None]
  - PNEUMONIA [None]
  - SARCOIDOSIS [None]
